FAERS Safety Report 4878582-5 (Version None)
Quarter: 2006Q1

REPORT INFORMATION
  Report Type: 
  Country: None (occurrence: None)
  Receive Date: 20060112
  Receipt Date: 20050722
  Transmission Date: 20060701
  Serious: Yes (Hospitalization)
  Sender: FDA-Public Use
  Company Number: FR-BOEHRINGER INGELHEIM PHARMACEUTICALS, INC.-2005-FF-00532FF

PATIENT
  Sex: Male
  Weight: 78 kg

DRUGS (10)
  1. TIPRANAVIR + RITONAVIR CO-ADMIN [Suspect]
     Indication: HIV INFECTION
     Dosage: TPV/RTV: 500/200 MG B.I.D.
     Route: 048
     Dates: start: 20050517, end: 20050616
  2. VIREAD [Concomitant]
     Indication: HIV INFECTION
     Route: 048
     Dates: start: 20030830
  3. RETROVIR [Concomitant]
     Indication: HIV INFECTION
     Route: 048
     Dates: start: 20050422
  4. FUZEON [Concomitant]
     Indication: HIV INFECTION
     Route: 058
     Dates: start: 20050422
  5. EMTRIVA [Concomitant]
     Indication: HIV INFECTION
     Route: 048
     Dates: start: 20050422
  6. TENORMIN [Concomitant]
     Indication: ANGINA PECTORIS
     Route: 048
     Dates: start: 20001123
  7. ASPEGIC [Concomitant]
     Indication: ANGINA PECTORIS
     Route: 048
     Dates: start: 20010101
  8. PLAVIX [Concomitant]
     Indication: ANGINA PECTORIS
     Route: 048
     Dates: start: 20020525
  9. AMLOR [Concomitant]
     Indication: ANGINA PECTORIS
     Route: 048
     Dates: start: 20020629
  10. ELISOR [Concomitant]
     Route: 048

REACTIONS (4)
  - ANGINA PECTORIS [None]
  - HYPERCHOLESTEROLAEMIA [None]
  - HYPERTRIGLYCERIDAEMIA [None]
  - MUSCLE SPASMS [None]
